FAERS Safety Report 6405301-3 (Version None)
Quarter: 2009Q4

REPORT INFORMATION
  Report Type: 
  Country: None (occurrence: None)
  Receive Date: 20091016
  Receipt Date: 20091016
  Transmission Date: 20100525
  Serious: Yes (Life-Threatening, Other)
  Sender: FDA-Public Use
  Company Number: None

PATIENT
  Sex: Female
  Weight: 136.9863 kg

DRUGS (1)
  1. KLONOPIN [Suspect]
     Indication: SCHIZOAFFECTIVE DISORDER
     Dosage: 0.5 MG ONE AT AM ONE AT PM
     Dates: start: 20090912

REACTIONS (3)
  - DIZZINESS [None]
  - RASH [None]
  - SWELLING [None]
